FAERS Safety Report 12838902 (Version 4)
Quarter: 2017Q1

REPORT INFORMATION
  Report Type: Spontaneous
  Country: US (occurrence: US)
  Receive Date: 20161012
  Receipt Date: 20170125
  Transmission Date: 20170428
  Serious: No
  Sender: FDA-Public Use
  Company Number: US-PFIZER INC-2016469864

PATIENT
  Age: 63 Year
  Sex: Female
  Weight: 68.4 kg

DRUGS (24)
  1. VALERIAN ROOT [Concomitant]
     Active Substance: VALERIAN
     Dosage: UNK
  2. HYDRALAZINE [Concomitant]
     Active Substance: HYDRALAZINE HYDROCHLORIDE
     Dosage: 50 MG, 3X/DAY (1 TAB(S))
     Route: 048
  3. LYRICA [Suspect]
     Active Substance: PREGABALIN
     Dosage: 100 MG, 3X/DAY (FOR 30 DAYS)
     Route: 048
  4. MAGNESIUM HYDROXIDE. [Concomitant]
     Active Substance: MAGNESIUM HYDROXIDE
     Dosage: 400 MG, UNK
     Route: 048
  5. FLONASE [Concomitant]
     Active Substance: FLUTICASONE PROPIONATE
     Dosage: 1 DF, DAILY (50 MCG/INH)
     Route: 045
  6. PRAVASTATIN. [Concomitant]
     Active Substance: PRAVASTATIN
     Dosage: 80 MG, 1X/DAY (1 TAB(S) HS)
     Route: 048
  7. FISH OIL [Concomitant]
     Active Substance: FISH OIL
     Dosage: 3000 MG, 3X/DAY (3 CAP(S))
     Route: 048
  8. VOLTAREN [Concomitant]
     Active Substance: DICLOFENAC SODIUM
     Dosage: 2 G, 4X/DAY
     Route: 061
  9. HYDROCHLOROTHIAZIDE W/LISINOPRIL [Concomitant]
     Active Substance: HYDROCHLOROTHIAZIDE\LISINOPRIL
     Dosage: (HYDROCHLOROTHIAZIDE 12.5, LISINOPRIL 20) MG, DAILY (1 TAB(S))
     Route: 048
  10. VITAMIN D3 [Concomitant]
     Active Substance: CHOLECALCIFEROL
     Dosage: 2000 IU, DAILY (1 TAB(S))
     Route: 048
  11. TEMAZEPAM. [Concomitant]
     Active Substance: TEMAZEPAM
     Dosage: UNK UNK, 1X/DAY (HS)
     Route: 048
  12. VITAMIN C [Concomitant]
     Active Substance: ASCORBIC ACID
     Dosage: 1000 MG, 2X/DAY (2 CAP(S))
     Route: 048
  13. TOPIRAMATE. [Concomitant]
     Active Substance: TOPIRAMATE
     Dosage: 50 MG, 2X/DAY (1 TAB(S))
     Route: 048
  14. FLUOXETINE [Concomitant]
     Active Substance: FLUOXETINE HYDROCHLORIDE
     Dosage: 60 MG, 1X/DAY (QAM)
     Route: 048
  15. PROTONIX [Concomitant]
     Active Substance: PANTOPRAZOLE SODIUM
     Dosage: UNK UNK, DAILY
     Route: 048
  16. TRAZODONE [Concomitant]
     Active Substance: TRAZODONE HYDROCHLORIDE
     Dosage: 150 MG, 1X/DAY (1 TAB(S) HS)
     Route: 048
  17. CALCIUM [Concomitant]
     Active Substance: CALCIUM
     Dosage: 1200 MG, 2X/DAY (2 TAB(S))
     Route: 048
  18. NAPROXEN. [Concomitant]
     Active Substance: NAPROXEN
     Dosage: 500 MG, UNK
     Route: 048
  19. BACLOFEN. [Concomitant]
     Active Substance: BACLOFEN
     Dosage: UNK UNK, 3X/DAY
     Route: 048
  20. FOSAMAX [Concomitant]
     Active Substance: ALENDRONATE SODIUM
     Dosage: 70 MG, WEEKLY (1 TAB(S) QWEEK)
     Route: 048
  21. CARVEDILOL. [Concomitant]
     Active Substance: CARVEDILOL
     Dosage: 6.25 MG, 2X/DAY (1 TAB(S))
     Route: 048
  22. OXYCODONE [Concomitant]
     Active Substance: OXYCODONE
     Dosage: 10 MG, (1 TAB(S) Q6 HRS)
     Route: 048
  23. CLONIDINE. [Concomitant]
     Active Substance: CLONIDINE
     Indication: BLOOD PRESSURE MEASUREMENT
     Dosage: 0.1 MG, 2X/DAY (1 TAB(S))
     Route: 048
  24. SENNA [Concomitant]
     Active Substance: SENNA LEAF\SENNOSIDES\SENNOSIDES A AND B
     Dosage: UNK UNK, 2X/DAY (2 TAB(S))
     Route: 048

REACTIONS (2)
  - Pre-existing condition improved [Unknown]
  - Therapeutic response unexpected [Unknown]
